FAERS Safety Report 14325355 (Version 1)
Quarter: 2017Q4

REPORT INFORMATION
  Report Type: Spontaneous
  Country: BR (occurrence: BR)
  Receive Date: 20171226
  Receipt Date: 20171226
  Transmission Date: 20180321
  Serious: Yes (Other)
  Sender: FDA-Public Use
  Company Number: PHHY2017BR188719

PATIENT
  Age: 64 Year
  Sex: Male

DRUGS (4)
  1. DEXAMETHASONE. [Suspect]
     Active Substance: DEXAMETHASONE
     Indication: LUNG NEOPLASM MALIGNANT
     Dosage: UNK
     Route: 065
  2. PEMETREXED. [Suspect]
     Active Substance: PEMETREXED
     Indication: LUNG NEOPLASM MALIGNANT
     Dosage: UNK
     Route: 065
  3. CISPLATIN. [Suspect]
     Active Substance: CISPLATIN
     Indication: LUNG NEOPLASM MALIGNANT
     Dosage: UNK
     Route: 065
  4. AMIKACIN [Concomitant]
     Active Substance: AMIKACIN
     Indication: PRODUCT USED FOR UNKNOWN INDICATION
     Dosage: UNK
     Route: 065

REACTIONS (12)
  - Febrile neutropenia [Recovered/Resolved]
  - Anaemia [Recovered/Resolved]
  - Bronchopulmonary aspergillosis [Recovered/Resolved]
  - Lower respiratory tract infection [Recovered/Resolved]
  - C-reactive protein increased [Recovered/Resolved]
  - Thrombocytopenia [Recovered/Resolved]
  - Product use in unapproved indication [Unknown]
  - Blood albumin decreased [Recovered/Resolved]
  - Hyperglycaemia [Recovered/Resolved]
  - Red blood cell sedimentation rate increased [Recovered/Resolved]
  - Hyponatraemia [Recovered/Resolved]
  - Lung infiltration [Recovered/Resolved]
